FAERS Safety Report 20060888 (Version 1)
Quarter: 2021Q4

REPORT INFORMATION
  Report Type: Spontaneous
  Country: CH (occurrence: CH)
  Receive Date: 20211112
  Receipt Date: 20211112
  Transmission Date: 20220303
  Serious: Yes (Other)
  Sender: FDA-Public Use
  Company Number: CH-LEADINGPHARMA-CH-2021LEALIT00313

PATIENT

DRUGS (1)
  1. LIDOCAINE [Suspect]
     Active Substance: LIDOCAINE
     Indication: Local anaesthesia
     Route: 065

REACTIONS (8)
  - Poisoning [Recovered/Resolved]
  - Paresis [Recovered/Resolved]
  - Dry mouth [Recovered/Resolved]
  - Anaesthesia oral [Recovered/Resolved]
  - Paraesthesia oral [Recovered/Resolved]
  - Dysphagia [Recovered/Resolved]
  - Vertigo [Recovered/Resolved]
  - Dysaesthesia [Recovered/Resolved]
